FAERS Safety Report 8362315-4 (Version None)
Quarter: 2012Q2

REPORT INFORMATION
  Report Type: 
  Country: None (occurrence: None)
  Receive Date: 20120515
  Receipt Date: 20120510
  Transmission Date: 20120825
  Serious: Yes (Hospitalization)
  Sender: FDA-Public Use
  Company Number: DE-AMGEN-DEUSP2012029419

PATIENT
  Sex: Female

DRUGS (17)
  1. CYCLOPHOSPHAMIDE [Suspect]
     Indication: B-CELL LYMPHOMA
     Dosage: 1483 MG, Q2WK
     Route: 042
     Dates: start: 20120426
  2. DOXORUBICIN HCL [Suspect]
     Indication: B-CELL LYMPHOMA
     Dosage: 100 MG, Q2WK
     Route: 042
     Dates: start: 20120426
  3. VINCRISTINE SULFATE [Suspect]
     Indication: B-CELL LYMPHOMA
     Dosage: 3.94 MG, Q2WK
     Route: 042
     Dates: start: 20120426
  4. ACYCLOVIR [Concomitant]
     Indication: PROPHYLAXIS
     Dosage: 400 MG, UNK
     Dates: start: 20120412
  5. ACETYLSALICYLIC ACID SRT [Concomitant]
     Indication: ARTERIOSCLEROSIS CORONARY ARTERY
     Dosage: 100 MG, UNK
     Dates: start: 20120412
  6. NEULASTA [Suspect]
     Indication: B-CELL LYMPHOMA
     Dosage: UNK
     Route: 058
     Dates: start: 20120429
  7. RITUXIMAB [Suspect]
     Indication: B-CELL LYMPHOMA
     Dosage: 742.5 MG, Q2WK
     Route: 042
     Dates: start: 20120425
  8. SIMVASTATIN [Concomitant]
     Indication: ARTERIOSCLEROSIS CORONARY ARTERY
     Dosage: 20 MG, QD
     Dates: start: 20120412
  9. PANTOPRAZOLE [Concomitant]
     Indication: PROPHYLAXIS AGAINST GASTROINTESTINAL ULCER
     Dosage: 80 MG, UNK
     Dates: start: 20120412
  10. LEVOTHYROXINE SODIUM [Concomitant]
     Indication: HYPOTHYROIDISM
     Dosage: 100 MUG, UNK
     Dates: start: 20120412
  11. TORSEMIDE [Concomitant]
     Indication: HYPERTENSION
     Dosage: 10 MG, UNK
     Dates: start: 20120412
  12. TRIMETHOPRIM + SULFAMETHOXAZOLE [Concomitant]
     Indication: ANTIFUNGAL PROPHYLAXIS
     Dosage: 960 MG, 2 TIMES/WK
     Dates: start: 20120412
  13. PREDNISOLONE [Suspect]
     Indication: B-CELL LYMPHOMA
     Dosage: 100 MG, UNK
     Dates: start: 20120426, end: 20120430
  14. TIOTROPIUM BROMIDE [Concomitant]
     Indication: CHRONIC OBSTRUCTIVE PULMONARY DISEASE
     Dosage: 18 MUG, UNK
     Dates: start: 20120412
  15. ENOXAPARIN NATRIUM [Concomitant]
     Indication: PROPHYLAXIS
     Dosage: 9 ML, UNK
     Dates: start: 20120412
  16. NEBIVOLOL [Concomitant]
     Indication: ATRIAL FIBRILLATION
     Dosage: 5 MG, UNK
     Dates: start: 20120412
  17. RAMIPRIL [Concomitant]
     Indication: HYPERTENSION
     Dosage: 5 MG, UNK
     Dates: start: 20120412

REACTIONS (1)
  - THROMBOCYTOPENIA [None]
